FAERS Safety Report 7399615-0 (Version None)
Quarter: 2011Q2

REPORT INFORMATION
  Report Type: 
  Country: None (occurrence: None)
  Receive Date: 20110407
  Receipt Date: 20110304
  Transmission Date: 20111010
  Serious: Yes (Hospitalization, Other)
  Sender: FDA-Public Use
  Company Number: US-BAYER-201022918NA

PATIENT
  Sex: Female
  Weight: 62 kg

DRUGS (9)
  1. YASMIN [Suspect]
     Indication: MENSTRUATION IRREGULAR
     Dosage: UNK
     Route: 048
     Dates: start: 20090101, end: 20090701
  2. ALBUTEROL [Concomitant]
     Route: 049
  3. ZYRTEC [Concomitant]
     Route: 048
  4. UNCODEABLE ^UNCLASSIFIABLE^ [Concomitant]
     Dosage: UNK
     Dates: start: 20090511
  5. NASACORT [Concomitant]
     Dosage: UNK
     Dates: start: 20090511
  6. LEVOTHYROXINE [Concomitant]
     Dosage: 75 MCG/24HR, QD
  7. OCELLA [Suspect]
     Indication: MENSTRUATION IRREGULAR
     Dosage: UNK
     Dates: end: 20090701
  8. LEVOTHYROXINE [Concomitant]
     Dosage: 175 ?G, QD
     Route: 048
  9. IRON [Concomitant]
     Route: 048

REACTIONS (1)
  - PULMONARY EMBOLISM [None]
